FAERS Safety Report 19278513 (Version 6)
Quarter: 2021Q3

REPORT INFORMATION
  Report Type: Spontaneous
  Country: JP (occurrence: JP)
  Receive Date: 20210520
  Receipt Date: 20210818
  Transmission Date: 20211014
  Serious: Yes (Death, Hospitalization, Other)
  Sender: FDA-Public Use
  Company Number: JP-CELGENEUS-JPN-20210503899

PATIENT
  Age: 86 Year
  Sex: Male

DRUGS (1)
  1. REVLIMID [Suspect]
     Active Substance: LENALIDOMIDE
     Indication: PLASMA CELL MYELOMA
     Dosage: 10 MILLIGRAM
     Route: 048

REACTIONS (3)
  - Pelvic fracture [Not Recovered/Not Resolved]
  - Cardiac failure congestive [Fatal]
  - Fall [Unknown]

NARRATIVE: CASE EVENT DATE: 20210517
